FAERS Safety Report 21387185 (Version 1)
Quarter: 2022Q3

REPORT INFORMATION
  Report Type: Spontaneous
  Country: US (occurrence: None)
  Receive Date: 20220927
  Receipt Date: 20220927
  Transmission Date: 20221026
  Serious: Yes (Other)
  Sender: FDA-Public Use
  Company Number: None

PATIENT
  Age: 60 Year
  Sex: Female
  Weight: 69.75 kg

DRUGS (9)
  1. PAXLOVID [Suspect]
     Active Substance: NIRMATRELVIR\RITONAVIR
     Indication: COVID-19
     Dosage: FREQUENCY : TWICE A DAY;?
     Route: 048
  2. PEPCID [Concomitant]
     Active Substance: FAMOTIDINE
  3. HERBALS\TURMERIC [Concomitant]
     Active Substance: HERBALS\TURMERIC
  4. PROBIOTICS NOS [Concomitant]
     Active Substance: PROBIOTICS NOS
  5. Vitamins B [Concomitant]
  6. D [Concomitant]
  7. MAGNESIUM [Concomitant]
     Active Substance: MAGNESIUM
  8. KRILL OIL [Concomitant]
     Active Substance: DIETARY SUPPLEMENT\KRILL OIL
  9. ANTIHISTAMINES NOS [Concomitant]
     Active Substance: ANTIHISTAMINES NOS

REACTIONS (8)
  - Nausea [None]
  - Dysgeusia [None]
  - Vomiting [None]
  - Loss of consciousness [None]
  - Amnesia [None]
  - Blood pressure increased [None]
  - Vomiting projectile [None]
  - Diarrhoea [None]

NARRATIVE: CASE EVENT DATE: 20220926
